FAERS Safety Report 5981783-6 (Version None)
Quarter: 2008Q4

REPORT INFORMATION
  Report Type: 
  Country: None (occurrence: None)
  Receive Date: 20081202
  Receipt Date: 20081118
  Transmission Date: 20090506
  Serious: Yes (Other)
  Sender: FDA-Public Use
  Company Number: 234318J08USA

PATIENT
  Age: 46 Year
  Sex: Female
  Weight: 113 kg

DRUGS (2)
  1. REBIF [Suspect]
     Indication: MULTIPLE SCLEROSIS
     Dosage: 44 MCG, 3 IN 1 WEEKS, SUBCUTANEOUS
     Route: 058
     Dates: start: 20071116
  2. LISINOPRIL [Concomitant]

REACTIONS (1)
  - GLUCOSE TOLERANCE IMPAIRED [None]
